FAERS Safety Report 25926645 (Version 1)
Quarter: 2025Q4

REPORT INFORMATION
  Report Type: Spontaneous
  Country: US (occurrence: US)
  Receive Date: 20251015
  Receipt Date: 20251015
  Transmission Date: 20260118
  Serious: No
  Sender: PFIZER
  Company Number: US-PFIZER INC-202500042989

PATIENT
  Age: 65 Year
  Sex: Female

DRUGS (1)
  1. IBRANCE [Suspect]
     Active Substance: PALBOCICLIB
     Indication: Breast cancer female
     Dosage: TAKE 1 TABLET 125 MG TOTAL BY MOUTH DAILY FOR 21 DAYS. FOLLOWED BY 7 DAYS OFF, REPEAT 28 DAY CYCLES.
     Route: 048
     Dates: start: 20250222

REACTIONS (2)
  - Product dose omission in error [Unknown]
  - Malaise [Unknown]

NARRATIVE: CASE EVENT DATE: 20250101
